FAERS Safety Report 4682406-9 (Version None)
Quarter: 2005Q2

REPORT INFORMATION
  Report Type: 
  Country: None (occurrence: None)
  Receive Date: 20050531
  Receipt Date: 20050224
  Transmission Date: 20051028
  Serious: No
  Sender: FDA-Public Use
  Company Number: 2005BI004163

PATIENT
  Age: 49 Year
  Sex: Male

DRUGS (5)
  1. AMEVIVE [Suspect]
     Indication: PSORIASIS
     Dosage: 15 MG; QW; IM ,    15 MG; QW; IM
     Route: 030
     Dates: start: 20040714, end: 20041112
  2. AMEVIVE [Suspect]
     Indication: PSORIASIS
     Dosage: 15 MG; QW; IM ,    15 MG; QW; IM
     Route: 030
     Dates: start: 20050204
  3. CENTRUM [Concomitant]
  4. LORTAB [Concomitant]
  5. BENICAR [Concomitant]

REACTIONS (1)
  - INGUINAL HERNIA [None]
